FAERS Safety Report 13979370 (Version 1)
Quarter: 2017Q3

REPORT INFORMATION
  Report Type: Spontaneous
  Country: US (occurrence: US)
  Receive Date: 20170914
  Receipt Date: 20170914
  Transmission Date: 20171128
  Serious: No
  Sender: FDA-Public Use
  Company Number: US-ASTELLAS-2017US009852

PATIENT
  Age: 68 Year
  Sex: Male

DRUGS (1)
  1. XTANDI [Suspect]
     Active Substance: ENZALUTAMIDE
     Indication: PROSTATE CANCER
     Route: 048
     Dates: start: 20170126

REACTIONS (8)
  - Abdominal hernia [Unknown]
  - Dysphagia [Unknown]
  - Cough [Unknown]
  - Regurgitation [Unknown]
  - Drug ineffective [Unknown]
  - Wheezing [Unknown]
  - Gastrooesophageal reflux disease [Unknown]
  - Prostatic specific antigen increased [Not Recovered/Not Resolved]

NARRATIVE: CASE EVENT DATE: 20170130
